FAERS Safety Report 21035163 (Version 1)
Quarter: 2022Q3

REPORT INFORMATION
  Report Type: Spontaneous
  Country: US (occurrence: None)
  Receive Date: 20220701
  Receipt Date: 20220701
  Transmission Date: 20221027
  Serious: Yes (Other)
  Sender: FDA-Public Use
  Company Number: None

PATIENT
  Age: 42 Year
  Sex: Male

DRUGS (4)
  1. MAVYRET [Suspect]
     Active Substance: GLECAPREVIR\PIBRENTASVIR
     Indication: Hepatitis C
     Route: 048
     Dates: start: 20200408, end: 202008
  2. ZOLOFT [Concomitant]
     Active Substance: SERTRALINE HYDROCHLORIDE
  3. TRAZODONE [Concomitant]
     Active Substance: TRAZODONE HYDROCHLORIDE
  4. MOTRIN [Concomitant]
     Active Substance: IBUPROFEN

REACTIONS (6)
  - Vitiligo [None]
  - Deformity [None]
  - Depression [None]
  - Emotional distress [None]
  - Emotional distress [None]
  - Disease complication [None]
